FAERS Safety Report 12807859 (Version 1)
Quarter: 2016Q4

REPORT INFORMATION
  Report Type: Spontaneous
  Country: FR (occurrence: FR)
  Receive Date: 20161004
  Receipt Date: 20161004
  Transmission Date: 20170207
  Serious: Yes (Other)
  Sender: FDA-Public Use
  Company Number: FR-TEVA-695903ROM

PATIENT
  Age: 74 Year
  Sex: Male

DRUGS (6)
  1. ACIDE FOLIQUE CCD 5 MG [Suspect]
     Active Substance: FOLIC ACID
     Dosage: 1 DOSAGE FORMS DAILY;
     Route: 048
     Dates: start: 20160503, end: 20160528
  2. CALCIPARINE [Suspect]
     Active Substance: HEPARIN CALCIUM
     Dosage: .4 ML DAILY;
     Route: 058
     Dates: start: 20160421, end: 20160520
  3. ALPRAZOLAM. [Suspect]
     Active Substance: ALPRAZOLAM
     Dosage: .5 DOSAGE FORMS DAILY;
     Route: 048
     Dates: start: 20160506, end: 20160527
  4. MOCLAMINE 150 MG [Suspect]
     Active Substance: MOCLOBEMIDE
     Dosage: 2 DOSAGE FORMS DAILY;
     Route: 048
     Dates: start: 20160510
  5. SPASFON [Suspect]
     Active Substance: PHLOROGLUCINOL
     Dosage: 6 DOSAGE FORMS DAILY;
     Route: 048
     Dates: start: 20160516, end: 20160520
  6. LANSOPRAZOLE. [Suspect]
     Active Substance: LANSOPRAZOLE
     Dosage: 30 MILLIGRAM DAILY;
     Route: 048
     Dates: start: 20160420, end: 20160520

REACTIONS (1)
  - Pancytopenia [Recovering/Resolving]

NARRATIVE: CASE EVENT DATE: 20160520
